FAERS Safety Report 5935655-3 (Version None)
Quarter: 2008Q4

REPORT INFORMATION
  Report Type: 
  Country: None (occurrence: None)
  Receive Date: 20081030
  Receipt Date: 20081022
  Transmission Date: 20090506
  Serious: Yes (Other)
  Sender: FDA-Public Use
  Company Number: JP-NOVOPROD-278860

PATIENT
  Age: 46 Year
  Sex: Male
  Weight: 41.3 kg

DRUGS (4)
  1. NOVOLIN N [Suspect]
     Indication: INSULIN-REQUIRING TYPE 2 DIABETES MELLITUS
     Dosage: 4 IU, QD
  2. NOVOLIN N [Suspect]
     Dosage: 3 IU, QD
  3. INSULIN REGULAR                    /01223201/ [Suspect]
     Indication: INSULIN-REQUIRING TYPE 2 DIABETES MELLITUS
     Dosage: 14 IU, QD
  4. INSULIN REGULAR                    /01223201/ [Suspect]
     Dosage: 24 IU, QD

REACTIONS (3)
  - OEDEMA PERIPHERAL [None]
  - PERICARDIAL EFFUSION [None]
  - PLEURAL EFFUSION [None]
